FAERS Safety Report 22798815 (Version 7)
Quarter: 2023Q4

REPORT INFORMATION
  Report Type: Spontaneous
  Country: US (occurrence: US)
  Receive Date: 20230808
  Receipt Date: 20231116
  Transmission Date: 20240109
  Serious: No
  Sender: FDA-Public Use
  Company Number: US-PFIZER INC-PV202300132779

PATIENT
  Age: 13 Year
  Sex: Male

DRUGS (1)
  1. GENOTROPIN [Suspect]
     Active Substance: SOMATROPIN
     Indication: Growth retardation
     Dosage: 1.6 MG, 1X/DAY
     Dates: start: 202306

REACTIONS (5)
  - Drug dose omission by device [Unknown]
  - Device physical property issue [Unknown]
  - Device breakage [Unknown]
  - Device mechanical issue [Unknown]
  - Device information output issue [Unknown]
